FAERS Safety Report 6899435-7 (Version None)
Quarter: 2010Q3

REPORT INFORMATION
  Report Type: 
  Country: None (occurrence: None)
  Receive Date: 20100803
  Receipt Date: 20090630
  Transmission Date: 20110219
  Serious: Yes (Hospitalization, Other)
  Sender: FDA-Public Use
  Company Number: US-PFIZER INC-2009167311

PATIENT
  Sex: Male
  Weight: 86.168 kg

DRUGS (1)
  1. NEURONTIN [Suspect]
     Dosage: FREQUENCY: EVERY DAY;
     Route: 048

REACTIONS (1)
  - DIABETES MELLITUS [None]
